FAERS Safety Report 11753727 (Version 1)
Quarter: 2015Q4

REPORT INFORMATION
  Report Type: Spontaneous
  Country: US (occurrence: None)
  Receive Date: 20151118
  Receipt Date: 20151118
  Transmission Date: 20160304
  Serious: No
  Sender: FDA-Public Use
  Company Number: None

PATIENT
  Age: 46 Year
  Sex: Female

DRUGS (1)
  1. IBRANCE [Suspect]
     Active Substance: PALBOCICLIB
     Indication: BREAST CANCER
     Dosage: DAILY FOR 21 DAYS, THEN OFF
     Route: 048
     Dates: start: 20151014, end: 20151104

REACTIONS (4)
  - Back pain [None]
  - Myalgia [None]
  - Mobility decreased [None]
  - Feeling abnormal [None]

NARRATIVE: CASE EVENT DATE: 20151020
